FAERS Safety Report 23910362 (Version 1)
Quarter: 2024Q2

REPORT INFORMATION
  Report Type: Spontaneous
  Country: US (occurrence: None)
  Receive Date: 20240525
  Receipt Date: 20240525
  Transmission Date: 20240716
  Serious: Yes (Hospitalization)
  Sender: FDA-Public Use
  Company Number: None

PATIENT
  Age: 58 Year
  Sex: Female
  Weight: 60.3 kg

DRUGS (1)
  1. TAXOL [Suspect]
     Active Substance: PACLITAXEL
     Dates: end: 20240325

REACTIONS (13)
  - Chest pain [None]
  - Chest discomfort [None]
  - Flushing [None]
  - Back pain [None]
  - Electrocardiogram ST segment elevation [None]
  - Dizziness [None]
  - Nausea [None]
  - Retching [None]
  - Hyperhidrosis [None]
  - Pulmonary atypical adenomatous hyperplasia [None]
  - Pulmonary fibrosis [None]
  - Lung opacity [None]
  - Infusion related reaction [None]

NARRATIVE: CASE EVENT DATE: 20240325
